FAERS Safety Report 12094186 (Version 2)
Quarter: 2016Q1

REPORT INFORMATION
  Report Type: Report from Study
  Country: ZA (occurrence: ZA)
  Receive Date: 20160219
  Receipt Date: 20160302
  Transmission Date: 20160526
  Serious: Yes (Death, Hospitalization, Other)
  Sender: FDA-Public Use
  Company Number: ZA-AMGEN-ZAFSL2016018816

PATIENT
  Age: 52 Year
  Sex: Male

DRUGS (7)
  1. NOVORAPID [Concomitant]
     Active Substance: INSULIN ASPART
     Dosage: UNK UNK, TID
  2. CAPTOPRIL. [Concomitant]
     Active Substance: CAPTOPRIL
     Dosage: 50 MG, TID
     Route: 048
  3. ARANESP [Suspect]
     Active Substance: DARBEPOETIN ALFA
     Indication: ANAEMIA
     Dosage: 40 UNK, QWK
     Route: 058
     Dates: start: 20150116
  4. CARLOC [Concomitant]
     Active Substance: CARVEDILOL
     Dosage: 25 MG, BID
     Route: 048
  5. LASIX [Concomitant]
     Active Substance: FUROSEMIDE
     Dosage: 80 MG, BID
  6. PURESIS [Concomitant]
     Active Substance: FUROSEMIDE
     Dosage: 80 MG, BID
  7. FEDALOC [Concomitant]
     Dosage: 60 MG, QD

REACTIONS (3)
  - Death [Fatal]
  - Type 1 diabetes mellitus [Unknown]
  - Haemoglobin abnormal [Unknown]

NARRATIVE: CASE EVENT DATE: 20151101
